FAERS Safety Report 9089524 (Version 1)
Quarter: 2013Q1

REPORT INFORMATION
  Report Type: Spontaneous
  Country: US (occurrence: US)
  Receive Date: 20130201
  Receipt Date: 20130201
  Transmission Date: 20140127
  Serious: Yes (Hospitalization)
  Sender: FDA-Public Use
  Company Number: PHEH2013US002552

PATIENT
  Sex: Female

DRUGS (3)
  1. GLEEVEC [Suspect]
     Indication: CHRONIC MYELOID LEUKAEMIA
     Dosage: 400 MG, QOD
     Route: 048
     Dates: start: 20100707
  2. GLEEVEC [Suspect]
     Dosage: 100 MG, QD
     Route: 048
  3. CEFACLOR [Concomitant]
     Dosage: UNK UKN, UNK

REACTIONS (1)
  - Renal disorder [Unknown]
